FAERS Safety Report 5274302-3 (Version None)
Quarter: 2007Q1

REPORT INFORMATION
  Report Type: 
  Country: None (occurrence: None)
  Receive Date: 20070323
  Receipt Date: 20070313
  Transmission Date: 20070707
  Serious: Yes (Other)
  Sender: FDA-Public Use
  Company Number: GB-JNJFOC-20070303684

PATIENT
  Age: 47 Year
  Sex: Female
  Weight: 43 kg

DRUGS (2)
  1. TOPIRAMATE [Suspect]
     Indication: MIGRAINE PROPHYLAXIS
     Route: 048
  2. TERBUTALINE SULFATE [Concomitant]
     Indication: ASTHMA
     Route: 055

REACTIONS (3)
  - ANOREXIA [None]
  - BODY MASS INDEX DECREASED [None]
  - WEIGHT DECREASED [None]
